FAERS Safety Report 8058988-6 (Version None)
Quarter: 2012Q1

REPORT INFORMATION
  Report Type: 
  Country: None (occurrence: None)
  Receive Date: 20120120
  Receipt Date: 20110922
  Transmission Date: 20120608
  Serious: No
  Sender: FDA-Public Use
  Company Number: US-BAUSCH-2011BL006438

PATIENT
  Age: 82 Year
  Sex: Female

DRUGS (5)
  1. TOBRAMYCIN [Suspect]
     Indication: PREOPERATIVE CARE
     Route: 047
     Dates: start: 20110911
  2. TOBRAMYCIN [Suspect]
     Indication: POSTOPERATIVE CARE
     Route: 047
     Dates: start: 20110911
  3. NEVANAC [Concomitant]
     Indication: POSTOPERATIVE CARE
     Route: 047
     Dates: start: 20110901
  4. VIGAMOX [Concomitant]
     Indication: POSTOPERATIVE CARE
     Route: 047
     Dates: start: 20110901
  5. ATENOLOL [Concomitant]
     Indication: HYPERTENSION

REACTIONS (7)
  - EYELIDS PRURITUS [None]
  - BALANCE DISORDER [None]
  - FATIGUE [None]
  - LACRIMATION INCREASED [None]
  - SWELLING FACE [None]
  - OEDEMA PERIPHERAL [None]
  - PHOTOPHOBIA [None]
